FAERS Safety Report 24676276 (Version 2)
Quarter: 2025Q1

REPORT INFORMATION
  Report Type: Spontaneous
  Country: US (occurrence: US)
  Receive Date: 20241128
  Receipt Date: 20250110
  Transmission Date: 20250408
  Serious: No
  Sender: SANOFI AVENTIS
  Company Number: US-SA-2024SA347561

PATIENT
  Age: 64 Year
  Sex: Female

DRUGS (20)
  1. DUPIXENT [Suspect]
     Active Substance: DUPILUMAB
     Indication: Asthma
     Dosage: 300 MG, QOW
     Route: 058
     Dates: start: 20231011
  2. ALBUTEROL SULFATE [Concomitant]
     Active Substance: ALBUTEROL SULFATE
  3. CALCIUM CITRATE + D3 [Concomitant]
  4. COZAAR [Concomitant]
     Active Substance: LOSARTAN POTASSIUM
  5. EUFLEXXA [Concomitant]
     Active Substance: HYALURONATE SODIUM
  6. LIPITOR [Concomitant]
     Active Substance: ATORVASTATIN CALCIUM
  7. PROBIOTICS NOS [Concomitant]
     Active Substance: PROBIOTICS NOS
  8. PULMICORT TURBUHALER [Concomitant]
     Active Substance: BUDESONIDE
  9. SINGULAIR [Concomitant]
     Active Substance: MONTELUKAST SODIUM
  10. HYDROCHLOROTHIAZIDE\TRIAMTERENE [Concomitant]
     Active Substance: HYDROCHLOROTHIAZIDE\TRIAMTERENE
  11. TYLENOL [Concomitant]
     Active Substance: ACETAMINOPHEN
  12. VITAMIN B12 [Concomitant]
     Active Substance: CYANOCOBALAMIN
  13. VITAMIN C [Concomitant]
     Active Substance: ASCORBIC ACID
  14. XARELTO [Concomitant]
     Active Substance: RIVAROXABAN
  15. ZETIA [Concomitant]
     Active Substance: EZETIMIBE
  16. CLARITHROMYCIN [Concomitant]
     Active Substance: CLARITHROMYCIN
  17. VITAMINS NOS [Concomitant]
     Active Substance: VITAMINS
  18. PIROXICAM [Concomitant]
     Active Substance: PIROXICAM
  19. OMEPRAZOLE [Concomitant]
     Active Substance: OMEPRAZOLE
  20. TRELEGY ELLIPTA [Concomitant]
     Active Substance: FLUTICASONE FUROATE\UMECLIDINIUM BROMIDE\VILANTEROL TRIFENATATE

REACTIONS (3)
  - Impaired quality of life [Unknown]
  - Asthma [Unknown]
  - Drug ineffective [Unknown]

NARRATIVE: CASE EVENT DATE: 20241201
